FAERS Safety Report 8463134-0 (Version None)
Quarter: 2012Q2

REPORT INFORMATION
  Report Type: 
  Country: None (occurrence: None)
  Receive Date: 20120625
  Receipt Date: 20120618
  Transmission Date: 20120825
  Serious: Yes (Other)
  Sender: FDA-Public Use
  Company Number: US-BAYER-2012-061140

PATIENT
  Weight: 3 kg

DRUGS (1)
  1. MIRENA [Suspect]
     Dosage: UNK
     Route: 064
     Dates: start: 20110810, end: 20110915

REACTIONS (1)
  - FOETAL GROWTH RESTRICTION [None]
